FAERS Safety Report 9466062 (Version 2)
Quarter: 2013Q3

REPORT INFORMATION
  Report Type: Spontaneous
  Country: DK (occurrence: DK)
  Receive Date: 20130820
  Receipt Date: 20130820
  Transmission Date: 20140515
  Serious: Yes (Other)
  Sender: FDA-Public Use
  Company Number: DK-ABBOTT-13P-044-1055358-00

PATIENT
  Age: 57 Year
  Sex: Female
  Weight: 65 kg

DRUGS (2)
  1. HUMIRA [Suspect]
     Indication: RHEUMATOID ARTHRITIS
     Dates: start: 20080401, end: 20091120
  2. UNSPECIFIED PAIN KILLERS [Concomitant]
     Indication: PAIN

REACTIONS (2)
  - Arthropathy [Unknown]
  - Cervix carcinoma stage III [Recovered/Resolved]
